FAERS Safety Report 5979065-1 (Version None)
Quarter: 2008Q4

REPORT INFORMATION
  Report Type: 
  Country: None (occurrence: None)
  Receive Date: 20081204
  Receipt Date: 20080611
  Transmission Date: 20090506
  Serious: No
  Sender: FDA-Public Use
  Company Number: US-ABBOTT-08P-163-0456747-00

PATIENT
  Sex: Male
  Weight: 76.726 kg

DRUGS (3)
  1. TRICOR [Suspect]
     Indication: BLOOD TRIGLYCERIDES INCREASED
     Route: 048
     Dates: start: 20030101, end: 20080601
  2. ATORVASTATIN CALCIUM [Suspect]
     Indication: BLOOD TRIGLYCERIDES INCREASED
     Route: 048
     Dates: start: 20030101, end: 20080601
  3. ATORVASTATIN CALCIUM [Suspect]
     Indication: BLOOD CHOLESTEROL INCREASED

REACTIONS (11)
  - ANOREXIA [None]
  - ARTHRALGIA [None]
  - BACK PAIN [None]
  - COLD SWEAT [None]
  - DEPRESSION [None]
  - FATIGUE [None]
  - INFLUENZA LIKE ILLNESS [None]
  - INSOMNIA [None]
  - MYALGIA [None]
  - PYREXIA [None]
  - WEIGHT DECREASED [None]
